FAERS Safety Report 11155491 (Version 2)
Quarter: 2015Q4

REPORT INFORMATION
  Report Type: Spontaneous
  Country: US (occurrence: US)
  Receive Date: 20150602
  Receipt Date: 20151016
  Transmission Date: 20160304
  Serious: Yes (Death)
  Sender: FDA-Public Use
  Company Number: US-BAYER-2015-283219

PATIENT
  Age: 28 Year
  Sex: Female
  Weight: 126.8 kg

DRUGS (7)
  1. ORTHO TRI CYCLEN [Concomitant]
     Active Substance: ETHINYL ESTRADIOL\NORGESTIMATE
     Indication: DYSMENORRHOEA
  2. MELOXICAM. [Concomitant]
     Active Substance: MELOXICAM
     Dosage: 15MG ORAL ONE DAILY
     Route: 048
  3. YASMIN [Suspect]
     Active Substance: DROSPIRENONE\ETHINYL ESTRADIOL
     Dosage: UNK
     Dates: start: 20020729, end: 20110308
  4. ORTHO TRI CYCLEN [Concomitant]
     Active Substance: ETHINYL ESTRADIOL\NORGESTIMATE
     Indication: MENSTRUAL CYCLE MANAGEMENT
  5. YAZ [Suspect]
     Active Substance: DROSPIRENONE\ETHINYL ESTRADIOL
     Dosage: UNK
     Dates: start: 20020729, end: 20110308
  6. GIANVI [Suspect]
     Active Substance: DROSPIRENONE\ETHINYL ESTRADIOL
  7. CYCLOBENZAPRINE [Concomitant]
     Active Substance: CYCLOBENZAPRINE
     Dosage: 5MG ORAL THREE TIMES A DAY
     Route: 048

REACTIONS (8)
  - Pulmonary embolism [Fatal]
  - Psychological trauma [None]
  - Deep vein thrombosis [Fatal]
  - Pain [Fatal]
  - Anhedonia [None]
  - Injury [Fatal]
  - Fear of disease [None]
  - Anxiety [None]

NARRATIVE: CASE EVENT DATE: 20110308
